FAERS Safety Report 7246425-0 (Version None)
Quarter: 2011Q1

REPORT INFORMATION
  Report Type: 
  Country: None (occurrence: None)
  Receive Date: 20110126
  Receipt Date: 20110112
  Transmission Date: 20110831
  Serious: Yes (Hospitalization)
  Sender: FDA-Public Use
  Company Number: ES-ELI_LILLY_AND_COMPANY-ES201004007453

PATIENT
  Sex: Female

DRUGS (13)
  1. ACFOL [Concomitant]
     Dosage: 10 MG, WEEKLY (1/W)
     Route: 048
  2. ESERTIA [Concomitant]
     Dosage: 15 MG, WEEKLY (1/W)
     Route: 048
  3. TENORMIN [Concomitant]
     Indication: HYPERTENSION
     Dosage: 50 MG, DAILY (1/D)
     Route: 048
  4. MINITRAN /00003201/ [Concomitant]
     Dosage: 10 MG, DAILY (1/D)
     Route: 062
  5. METOJECT [Concomitant]
     Indication: RHEUMATOID ARTHRITIS
     Dosage: 10 MG, WEEKLY (1/W)
     Route: 058
     Dates: start: 20010101
  6. FORTEO [Suspect]
     Indication: OSTEOPOROSIS
     Dosage: 20 UG, DAILY (1/D)
     Route: 058
     Dates: start: 20090303
  7. ADIRO [Concomitant]
     Indication: MYOCARDIAL INFARCTION
     Dosage: 150 MG, DAILY (1/D)
     Route: 048
  8. SINTROM [Concomitant]
     Indication: THROMBOSIS
     Dosage: 4 MG, DAILY (1/D)
     Route: 048
  9. ZOCOR [Concomitant]
     Indication: HYPERCHOLESTEROLAEMIA
     Dosage: 20 MG, DAILY (1/D)
     Route: 048
  10. PANTECTA [Concomitant]
     Dosage: 20 MG, DAILY (1/D)
     Route: 048
  11. LEXATIN [Concomitant]
     Indication: ANXIETY
     Dosage: 1.5 MG, DAILY (1/D)
     Route: 048
  12. DACORTIN [Concomitant]
     Indication: RHEUMATOID ARTHRITIS
     Dosage: 5 MG, WEEKLY (1/W)
     Route: 048
     Dates: start: 20010101
  13. IDEOS                              /00944201/ [Concomitant]
     Indication: OSTEOPOROSIS
     Dosage: UNK, DAILY (1/D)
     Route: 048
     Dates: start: 20100226

REACTIONS (4)
  - TIBIA FRACTURE [None]
  - FALL [None]
  - ARTHRALGIA [None]
  - BLOOD CREATININE INCREASED [None]
